FAERS Safety Report 26015183 (Version 1)
Quarter: 2025Q4

REPORT INFORMATION
  Report Type: Spontaneous
  Country: US (occurrence: US)
  Receive Date: 20251109
  Receipt Date: 20251109
  Transmission Date: 20260117
  Serious: Yes (Other)
  Sender: SOMERSET THERAPEUTICS, LLC
  Company Number: US-MIT-25-75-US-2025-SOM-LIT-00072

PATIENT
  Age: 60 Year
  Sex: Male

DRUGS (6)
  1. CALCIUM GLUCONATE [Suspect]
     Active Substance: CALCIUM GLUCONATE
     Indication: Product used for unknown indication
     Dosage: ICAL GOAL 2 TO 2.6 FOR 24 HOURS
     Route: 065
  2. CALCIUM GLUCONATE [Suspect]
     Active Substance: CALCIUM GLUCONATE
     Dosage: ICAL GOAL REDUCED TO 1.8 TO 2( HOSPITAL DAY 2)
     Route: 065
  3. AMLODIPINE [Suspect]
     Active Substance: AMLODIPINE BESYLATE
     Indication: Product used for unknown indication
     Dosage: NINETY TABLETS
     Route: 048
  4. VASOPRESSIN [Suspect]
     Active Substance: VASOPRESSIN
     Indication: Hypotension
     Route: 065
  5. EPINEPHRINE [Concomitant]
     Active Substance: EPINEPHRINE
     Route: 065
  6. NOREPINEPHRINE [Concomitant]
     Active Substance: NOREPINEPHRINE
     Dosage: 2 MCG/KG/MIN
     Route: 065

REACTIONS (1)
  - Nephrogenic diabetes insipidus [Recovered/Resolved]
